FAERS Safety Report 7752613-7 (Version None)
Quarter: 2011Q3

REPORT INFORMATION
  Report Type: 
  Country: None (occurrence: None)
  Receive Date: 20110915
  Receipt Date: 20110905
  Transmission Date: 20111222
  Serious: Yes (Hospitalization)
  Sender: FDA-Public Use
  Company Number: NL-ROCHE-800791

PATIENT
  Age: 37 Year
  Sex: Male

DRUGS (1)
  1. VEMURAFENIB [Suspect]
     Route: 048
     Dates: start: 20110707

REACTIONS (1)
  - CONSTIPATION [None]
